FAERS Safety Report 22727426 (Version 2)
Quarter: 2023Q4

REPORT INFORMATION
  Report Type: Report from Study
  Country: US (occurrence: US)
  Receive Date: 20230720
  Receipt Date: 20231026
  Transmission Date: 20240110
  Serious: No
  Sender: FDA-Public Use
  Company Number: US-IDORSIA-006127-2023-US

PATIENT
  Sex: Male

DRUGS (2)
  1. QUVIVIQ [Suspect]
     Active Substance: DARIDOREXANT
     Indication: Insomnia
     Dosage: 25 MG, QD
     Route: 048
     Dates: start: 20230511
  2. QUVIVIQ [Suspect]
     Active Substance: DARIDOREXANT
     Dosage: UNK (ONE 25MG TABLET PLUS HALF OF 25MG)
     Route: 048
     Dates: start: 202307

REACTIONS (3)
  - Drug tolerance increased [Unknown]
  - Therapeutic product effect decreased [Unknown]
  - Wrong technique in product usage process [Unknown]
